FAERS Safety Report 7371285-7 (Version None)
Quarter: 2011Q1

REPORT INFORMATION
  Report Type: 
  Country: None (occurrence: None)
  Receive Date: 20110324
  Receipt Date: 20110317
  Transmission Date: 20110831
  Serious: Yes (Life-Threatening, Hospitalization)
  Sender: FDA-Public Use
  Company Number: NL-AMGEN-NLDSP2011015064

PATIENT
  Age: 48 Year
  Sex: Female
  Weight: 73 kg

DRUGS (3)
  1. METHOTREXATE [Suspect]
     Indication: PSORIATIC ARTHROPATHY
     Dosage: 7.5 MG, WEEKLY
     Dates: start: 20020901, end: 20091001
  2. FOLIC ACID [Concomitant]
     Dosage: 10 MG, WEEKLY
     Dates: start: 20020901
  3. ENBREL [Suspect]
     Indication: PSORIATIC ARTHROPATHY
     Dosage: 50 MG, WEEKLY
     Dates: start: 20050401, end: 20091001

REACTIONS (2)
  - CHOLELITHIASIS [None]
  - PANCREATITIS NECROTISING [None]
